FAERS Safety Report 7423333-3 (Version None)
Quarter: 2011Q2

REPORT INFORMATION
  Report Type: 
  Country: None (occurrence: None)
  Receive Date: 20110419
  Receipt Date: 20110405
  Transmission Date: 20111010
  Serious: Yes (Hospitalization)
  Sender: FDA-Public Use
  Company Number: PHHY2011US29084

PATIENT
  Sex: Female

DRUGS (12)
  1. PLAVIX [Concomitant]
  2. METOPROLOL [Concomitant]
     Dosage: 25 MG, UNK
  3. LORATADINE [Concomitant]
     Dosage: 10 MG, QD
  4. NOVOLOG MIX 70/30 [Concomitant]
  5. LEVOTHYROXINE SODIUM [Concomitant]
     Dosage: 100 MG, QD
  6. OMEPRAZOLE MAGNESIUM [Concomitant]
  7. PRAVASTATIN [Concomitant]
  8. AMLODIPINE [Concomitant]
  9. DIOVAN HCT [Suspect]
     Dosage: 1 DF, 320/25  MG DAILY
     Route: 048
     Dates: start: 20110316
  10. MILK OF MAGNESIA TAB [Concomitant]
  11. DIOVAN HCT [Suspect]
     Dosage: 1 DF, 320/25  MG DAILY
     Route: 048
  12. NASONEX [Concomitant]

REACTIONS (3)
  - CEREBROVASCULAR ACCIDENT [None]
  - DYSPHEMIA [None]
  - APHASIA [None]
